FAERS Safety Report 26037854 (Version 1)
Quarter: 2025Q4

REPORT INFORMATION
  Report Type: Spontaneous
  Country: US (occurrence: US)
  Receive Date: 20251112
  Receipt Date: 20251112
  Transmission Date: 20260118
  Serious: Yes (Life-Threatening, Hospitalization, Other)
  Sender: BRACCO
  Company Number: US-BRACCO-2025US03947

PATIENT
  Age: 60 Year
  Sex: Male

DRUGS (9)
  1. LUMASON [Suspect]
     Active Substance: SULFUR HEXAFLUORIDE
     Indication: Echocardiogram
     Dosage: 2 ML, SINGLE
     Route: 042
     Dates: start: 20250613, end: 20250613
  2. LUMASON [Suspect]
     Active Substance: SULFUR HEXAFLUORIDE
     Indication: Echocardiogram
     Dosage: 2 ML, SINGLE
     Route: 042
     Dates: start: 20250613, end: 20250613
  3. LUMASON [Suspect]
     Active Substance: SULFUR HEXAFLUORIDE
     Indication: Echocardiogram
     Dosage: 2 ML, SINGLE
     Route: 042
     Dates: start: 20250613, end: 20250613
  4. FLECAINIDE ACETATE [Concomitant]
     Active Substance: FLECAINIDE ACETATE
     Dosage: 50 MG
  5. FUROSEMIDE [Concomitant]
     Active Substance: FUROSEMIDE
     Dosage: 20 MG, QD
  6. METOPROLOL SUCCINATE [Concomitant]
     Active Substance: METOPROLOL SUCCINATE
     Dosage: 50 MG, BID
  7. SODIUM CHLORIDE [Concomitant]
     Active Substance: SODIUM CHLORIDE
     Dosage: 8 ML
     Route: 042
     Dates: start: 20250613, end: 20250613
  8. SODIUM CHLORIDE [Concomitant]
     Active Substance: SODIUM CHLORIDE
     Dosage: INTRAVENOUS FLUSH
     Route: 042
     Dates: start: 20250613, end: 20250613
  9. XARELTO [Concomitant]
     Active Substance: RIVAROXABAN
     Dosage: 20 MG, QD

REACTIONS (11)
  - Cardiac arrest [Recovered/Resolved]
  - Unresponsive to stimuli [Recovered/Resolved]
  - Pulseless electrical activity [Recovered/Resolved]
  - Blood pressure immeasurable [Recovered/Resolved]
  - Oxygen saturation immeasurable [Recovered/Resolved]
  - Pulse absent [Recovered/Resolved]
  - Dizziness [Recovered/Resolved]
  - Hyperhidrosis [Recovered/Resolved]
  - Cyanosis [Recovered/Resolved]
  - Dyspnoea [Recovered/Resolved]
  - Malaise [Recovered/Resolved]

NARRATIVE: CASE EVENT DATE: 20250613
